FAERS Safety Report 6702851-7 (Version None)
Quarter: 2010Q2

REPORT INFORMATION
  Report Type: 
  Country: None (occurrence: None)
  Receive Date: 20100429
  Receipt Date: 20100429
  Transmission Date: 20101027
  Serious: Yes (Hospitalization)
  Sender: FDA-Public Use
  Company Number: None

PATIENT
  Sex: Male
  Weight: 66.6788 kg

DRUGS (8)
  1. GABAPENTIN [Suspect]
     Dosage: 100MG THREE TIMES DAILY PO
     Route: 048
  2. EPOGEN [Concomitant]
  3. NEPHROCAPS [Concomitant]
  4. HYDROCODONE BITARTRATE [Concomitant]
  5. ISOSORBIDE DINITRATE [Concomitant]
  6. MAGNESIUM SULFATE [Concomitant]
  7. LOPRESSOR [Concomitant]
  8. ADALAT [Concomitant]

REACTIONS (1)
  - DYSKINESIA [None]
